FAERS Safety Report 15290273 (Version 1)
Quarter: 2018Q3

REPORT INFORMATION
  Report Type: Spontaneous
  Country: US (occurrence: US)
  Receive Date: 20180804
  Receipt Date: 20180804
  Transmission Date: 20181010
  Serious: Yes (Life-Threatening, Disabling)
  Sender: FDA-Public Use
  Company Number: None

PATIENT
  Age: 31 Year
  Sex: Female
  Weight: 76.5 kg

DRUGS (3)
  1. LUPRON DEPOT [Suspect]
     Active Substance: LEUPROLIDE ACETATE
     Indication: ENDOMETRIOSIS
     Dosage: ?          QUANTITY:1 SHOT;OTHER FREQUENCY:EVERY MONTH;OTHER ROUTE:INJECTION TO THE THIGH?
     Dates: start: 20150916, end: 20160516
  2. CHIROPRACTOR [Concomitant]
  3. TENS UNIT [Concomitant]

REACTIONS (14)
  - Drug ineffective [None]
  - Insurance issue [None]
  - Enzyme level increased [None]
  - Lymphadenopathy [None]
  - Pleural effusion [None]
  - Head discomfort [None]
  - Swelling [None]
  - Neck pain [None]
  - Spinal cord disorder [None]
  - Hepatic steatosis [None]
  - Intervertebral disc protrusion [None]
  - Blood pressure increased [None]
  - Lordosis [None]
  - Paraesthesia [None]

NARRATIVE: CASE EVENT DATE: 20151016
